FAERS Safety Report 5338466-5 (Version None)
Quarter: 2007Q2

REPORT INFORMATION
  Report Type: 
  Country: None (occurrence: None)
  Receive Date: 20070530
  Receipt Date: 20070518
  Transmission Date: 20071010
  Serious: Yes (Other)
  Sender: FDA-Public Use
  Company Number: FR-ROCHE-498767

PATIENT
  Age: 59 Year
  Sex: Female

DRUGS (3)
  1. BONIVA [Suspect]
     Indication: OSTEOPOROSIS
     Route: 048
     Dates: start: 20070517
  2. 1 CONCOMITANT DRUG [Concomitant]
     Indication: MULTIPLE SCLEROSIS
     Dosage: DRUG NAME: CORTICOID
  3. METFORMIN HCL [Concomitant]
     Indication: DIABETES MELLITUS INSULIN-DEPENDENT

REACTIONS (3)
  - MUSCLE FATIGUE [None]
  - PYREXIA [None]
  - SALIVARY HYPERSECRETION [None]
